FAERS Safety Report 12867629 (Version 2)
Quarter: 2016Q4

REPORT INFORMATION
  Report Type: Spontaneous
  Country: JP (occurrence: JP)
  Receive Date: 20161020
  Receipt Date: 20161128
  Transmission Date: 20170207
  Serious: Yes (Hospitalization, Other)
  Sender: FDA-Public Use
  Company Number: JP-DSJP-DSJ-2016-132054

PATIENT

DRUGS (3)
  1. OLMETEC [Suspect]
     Active Substance: OLMESARTAN MEDOXOMIL
     Indication: HYPERTENSION
     Dosage: 20 MG, QD
     Route: 048
     Dates: start: 20160923, end: 20160923
  2. BAYASPIRIN [Concomitant]
     Active Substance: ASPIRIN
     Indication: HYPERTENSION
     Dosage: 100 MG, QD
     Route: 065
     Dates: start: 20160923, end: 20160923
  3. HYPOCA                             /01301602/ [Concomitant]
     Indication: HYPERTENSION
     Dosage: 15 MG, QD
     Route: 065
     Dates: start: 20160923, end: 20160923

REACTIONS (2)
  - Intentional product misuse [Unknown]
  - Hypotension [Recovered/Resolved]

NARRATIVE: CASE EVENT DATE: 20160923
